FAERS Safety Report 7554567-5 (Version None)
Quarter: 2011Q2

REPORT INFORMATION
  Report Type: 
  Country: None (occurrence: None)
  Receive Date: 20110617
  Receipt Date: 20110607
  Transmission Date: 20111010
  Serious: Yes (Hospitalization)
  Sender: FDA-Public Use
  Company Number: BE-ROCHE-779050

PATIENT
  Sex: Female
  Weight: 75 kg

DRUGS (5)
  1. BISOPROLOL FUMARATE [Concomitant]
     Dates: start: 20070101
  2. CAPECITABINE [Suspect]
     Indication: RECTAL CANCER
     Route: 065
  3. ACIDUM ACETYLSALICYLICUM [Concomitant]
     Dates: start: 19840101, end: 20110523
  4. BEVACIZUMAB [Suspect]
     Indication: RECTAL CANCER
     Dosage: DATE OF LAST DOSE PRIOR TO SAE: 23 MAY 2011, FORM: INFUSION
     Route: 042
     Dates: start: 20110523
  5. CANRENOL [Concomitant]
     Dates: start: 20050101

REACTIONS (1)
  - TUMOUR HAEMORRHAGE [None]
